FAERS Safety Report 5720274-4 (Version None)
Quarter: 2008Q2

REPORT INFORMATION
  Report Type: 
  Country: None (occurrence: None)
  Receive Date: 20080428
  Receipt Date: 20080416
  Transmission Date: 20081010
  Serious: Yes (Death)
  Sender: FDA-Public Use
  Company Number: GB-ROCHE-560006

PATIENT
  Sex: Male

DRUGS (3)
  1. CAPECITABINE [Suspect]
     Route: 048
     Dates: start: 20080315, end: 20080327
  2. OXALIPLATIN [Suspect]
     Route: 041
     Dates: start: 20080327, end: 20080327
  3. CETUXIMAB [Suspect]
     Route: 041
     Dates: start: 20080215, end: 20080327

REACTIONS (3)
  - CARDIAC ARREST [None]
  - MYOCARDIAL INFARCTION [None]
  - SNORING [None]
